FAERS Safety Report 7379768-0 (Version None)
Quarter: 2011Q1

REPORT INFORMATION
  Report Type: 
  Country: None (occurrence: None)
  Receive Date: 20110329
  Receipt Date: 20110322
  Transmission Date: 20110831
  Serious: Yes (Hospitalization, Other)
  Sender: FDA-Public Use
  Company Number: US-ASTELLAS-2011US001166

PATIENT
  Age: 59 Year
  Sex: Male

DRUGS (3)
  1. SOTALOL [Suspect]
     Indication: ATRIAL FIBRILLATION
     Dosage: UNK
     Route: 065
  2. PROGRAF [Suspect]
     Indication: LUNG TRANSPLANT
     Dosage: UNK
     Route: 065
  3. MULTAQ [Suspect]
     Indication: ATRIAL FIBRILLATION
     Dosage: 400 MG, BID
     Route: 048
     Dates: start: 20110201

REACTIONS (7)
  - OFF LABEL USE [None]
  - BLOOD CREATININE INCREASED [None]
  - HEART RATE INCREASED [None]
  - TOXICITY TO VARIOUS AGENTS [None]
  - ATRIAL FIBRILLATION [None]
  - RENAL FAILURE [None]
  - CARDIAC FAILURE [None]
